FAERS Safety Report 6362060-0 (Version None)
Quarter: 2009Q3

REPORT INFORMATION
  Report Type: 
  Country: None (occurrence: None)
  Receive Date: 20090918
  Receipt Date: 20090915
  Transmission Date: 20100115
  Serious: Yes (Death)
  Sender: FDA-Public Use
  Company Number: PHHY2009BR39587

PATIENT
  Age: 15 Year
  Sex: Male

DRUGS (3)
  1. OXCARBAZEPINE [Suspect]
     Indication: EPILEPSY
     Dosage: UNK
  2. LAMOTRIGINE [Concomitant]
  3. TOPIRAMATE [Concomitant]

REACTIONS (5)
  - CONJUNCTIVAL HYPERAEMIA [None]
  - CONVULSION [None]
  - ELECTROENCEPHALOGRAM ABNORMAL [None]
  - NUCLEAR MAGNETIC RESONANCE IMAGING BRAIN ABNORMAL [None]
  - SUDDEN UNEXPLAINED DEATH IN EPILEPSY [None]
